FAERS Safety Report 7085008-2 (Version None)
Quarter: 2010Q4

REPORT INFORMATION
  Report Type: 
  Country: None (occurrence: None)
  Receive Date: 20101027
  Receipt Date: 20101022
  Transmission Date: 20110411
  Serious: Yes (Hospitalization)
  Sender: FDA-Public Use
  Company Number: WAES 0907USA05594

PATIENT
  Age: 75 Year
  Sex: Male

DRUGS (4)
  1. SINEMET [Suspect]
     Indication: PRODUCT USED FOR UNKNOWN INDICATION
  2. COUMADIN [Suspect]
     Indication: THROMBOSIS PROPHYLAXIS
     Dosage: 2 DOSE/DAILY/PO
     Route: 048
     Dates: start: 20090123
  3. TAB APIXABAN UNK [Suspect]
     Indication: THROMBOSIS PROPHYLAXIS
     Dosage: 2 DOSE/DAILY/PO
     Route: 048
     Dates: start: 20090123
  4. PLACEBO (UNSPECIFIED) UNK [Suspect]
     Indication: THROMBOSIS PROPHYLAXIS
     Dosage: PO
     Route: 048
     Dates: start: 20090123

REACTIONS (2)
  - GAIT DISTURBANCE [None]
  - HALLUCINATION [None]
